FAERS Safety Report 12895028 (Version 2)
Quarter: 2016Q4

REPORT INFORMATION
  Report Type: Spontaneous
  Country: US (occurrence: US)
  Receive Date: 20161029
  Receipt Date: 20161107
  Transmission Date: 20170207
  Serious: No
  Sender: FDA-Public Use
  Company Number: US-TAKEDA-2016TUS019309

PATIENT
  Age: 36 Year
  Sex: Male
  Weight: 83.9 kg

DRUGS (2)
  1. LIALDA [Concomitant]
     Active Substance: MESALAMINE
     Dosage: UNK
     Route: 048
  2. ENTYVIO [Suspect]
     Active Substance: VEDOLIZUMAB
     Indication: COLITIS ULCERATIVE
     Dosage: 300 MG, UNK
     Route: 042
     Dates: start: 201606

REACTIONS (2)
  - Pruritus [Not Recovered/Not Resolved]
  - Dry skin [Not Recovered/Not Resolved]

NARRATIVE: CASE EVENT DATE: 20160920
